FAERS Safety Report 25589563 (Version 1)
Quarter: 2025Q3

REPORT INFORMATION
  Report Type: Spontaneous
  Country: GB (occurrence: GB)
  Receive Date: 20250722
  Receipt Date: 20250722
  Transmission Date: 20251021
  Serious: Yes (Life-Threatening, Other)
  Sender: MSN LABORATORIES PRIVATE LIMITED
  Company Number: None

PATIENT

DRUGS (4)
  1. ATORVASTATIN [Suspect]
     Active Substance: ATORVASTATIN
     Indication: Blood cholesterol
     Dosage: 20MG ONCE A DAY AT NIGHT
     Route: 065
     Dates: start: 20250525, end: 20250703
  2. TOFACITINIB [Concomitant]
     Active Substance: TOFACITINIB
     Indication: Juvenile idiopathic arthritis
     Route: 065
     Dates: start: 20240901
  3. NORTRIPTYLINE [Concomitant]
     Active Substance: NORTRIPTYLINE
     Indication: Depression
     Route: 065
     Dates: start: 20250201
  4. CELEBREX [Concomitant]
     Active Substance: CELECOXIB
     Indication: Juvenile idiopathic arthritis
     Route: 065
     Dates: start: 20130101

REACTIONS (4)
  - Anxiety [Recovered/Resolved]
  - Major depression [Recovered/Resolved]
  - Menstruation delayed [Recovered/Resolved]
  - Suicidal ideation [Recovered/Resolved]

NARRATIVE: CASE EVENT DATE: 20250605
